FAERS Safety Report 23339363 (Version 1)
Quarter: 2023Q4

REPORT INFORMATION
  Report Type: Spontaneous
  Country: US (occurrence: US)
  Receive Date: 20231226
  Receipt Date: 20231226
  Transmission Date: 20240109
  Serious: Yes (Other)
  Sender: FDA-Public Use
  Company Number: US-FreseniusKabi-FK202321051

PATIENT
  Age: 71 Year
  Sex: Male
  Weight: 64.8 kg

DRUGS (1)
  1. POLOCAINE-MPF [Suspect]
     Active Substance: MEPIVACAINE HYDROCHLORIDE
     Indication: Spinal anaesthesia
     Dosage: DOSE: 2 ML?FREQUENCY: ONCE?20 MG/ML, 2% SOLUTION
     Route: 037
     Dates: start: 20231205, end: 20231205

REACTIONS (3)
  - Hypotension [Recovered/Resolved]
  - Off label use [None]
  - Off label use [None]

NARRATIVE: CASE EVENT DATE: 20231205
